FAERS Safety Report 5472177-0 (Version None)
Quarter: 2007Q3

REPORT INFORMATION
  Report Type: 
  Country: None (occurrence: None)
  Receive Date: 20070925
  Receipt Date: 20070911
  Transmission Date: 20080115
  Serious: Yes (Hospitalization)
  Sender: FDA-Public Use
  Company Number: 308 / E2B_00011191

PATIENT
  Age: 41 Year
  Sex: Female

DRUGS (1)
  1. METFOMIN, TABLET [Suspect]
     Indication: DRUG USE FOR UNKNOWN INDICATION
     Dosage: OCCLUSIVE DRESSING TEC.
     Route: 046

REACTIONS (1)
  - CONVULSION [None]
